FAERS Safety Report 8926714 (Version 1)
Quarter: 2012Q4

REPORT INFORMATION
  Report Type: 
  Country: ES (occurrence: ES)
  Receive Date: 20121127
  Receipt Date: 20121127
  Transmission Date: 20130627
  Serious: Yes (Other)
  Sender: FDA-Public Use
  Company Number: ES-TEVA-371027ISR

PATIENT
  Age: 39 Year
  Sex: Female

DRUGS (1)
  1. PACLITAXEL [Suspect]
     Indication: CERVIX CARCINOMA
     Dosage: total dose:270 ml
     Route: 042
     Dates: start: 20121005, end: 20121005

REACTIONS (4)
  - Tremor [Recovered/Resolved]
  - Dizziness [Recovered/Resolved]
  - Flushing [Recovered/Resolved]
  - Oxygen saturation decreased [Recovered/Resolved]
